FAERS Safety Report 19459962 (Version 1)
Quarter: 2021Q2

REPORT INFORMATION
  Report Type: Spontaneous
  Country: CN (occurrence: CN)
  Receive Date: 20210625
  Receipt Date: 20210625
  Transmission Date: 20210717
  Serious: Yes (Hospitalization)
  Sender: FDA-Public Use
  Company Number: CN-B.I. PHARMACEUTICALS,INC./RIDGEFIELD-2021-BI-110033

PATIENT
  Age: 73 Year
  Sex: Male

DRUGS (3)
  1. CLOPIDOGREL [Suspect]
     Active Substance: CLOPIDOGREL BISULFATE
     Indication: ANTICOAGULANT THERAPY
     Route: 048
     Dates: start: 20210328, end: 20210413
  2. PRADAXA [Suspect]
     Active Substance: DABIGATRAN ETEXILATE MESYLATE
     Indication: HEPATIC CIRRHOSIS
     Route: 048
     Dates: start: 20210412, end: 20210412
  3. ADEMETIONINE 1,4?BUTANEDISULFONATE [Suspect]
     Active Substance: ADEMETIONINE BUTANEDISULFONATE
     Indication: HEPATIC CIRRHOSIS
     Route: 042
     Dates: start: 20210412, end: 20210419

REACTIONS (6)
  - Decreased appetite [Unknown]
  - Coagulopathy [Recovering/Resolving]
  - Leukopenia [Recovering/Resolving]
  - Affect lability [Recovering/Resolving]
  - Haemoglobin decreased [Unknown]
  - Platelet count decreased [Unknown]

NARRATIVE: CASE EVENT DATE: 20210413
